FAERS Safety Report 13195181 (Version 4)
Quarter: 2017Q2

REPORT INFORMATION
  Report Type: Report from Study
  Country: NL (occurrence: NL)
  Receive Date: 20170208
  Receipt Date: 20170411
  Transmission Date: 20170830
  Serious: Yes (Death, Hospitalization)
  Sender: FDA-Public Use
  Company Number: NL-AMGEN-NLDCT2016157120

PATIENT
  Age: 65 Year
  Sex: Male

DRUGS (2)
  1. AMG 145 [Suspect]
     Active Substance: EVOLOCUMAB
     Indication: HYPERCHOLESTEROLAEMIA
     Dosage: 3 ML, UNK
     Route: 058
     Dates: start: 20160715
  2. PREFILLED AUTOINJECTOR/PEN [Suspect]
     Active Substance: DEVICE
     Indication: HYPERCHOLESTEROLAEMIA
     Dosage: UNK
     Route: 058
     Dates: start: 20160715

REACTIONS (3)
  - Partial seizures [Not Recovered/Not Resolved]
  - Aphasia [Not Recovered/Not Resolved]
  - Metastases to central nervous system [Fatal]

NARRATIVE: CASE EVENT DATE: 20160920
